FAERS Safety Report 11415088 (Version 1)
Quarter: 2015Q3

REPORT INFORMATION
  Report Type: Spontaneous
  Country: US (occurrence: None)
  Receive Date: 20150824
  Receipt Date: 20150824
  Transmission Date: 20151125
  Serious: Yes (Life-Threatening, Disabling)
  Sender: FDA-Public Use
  Company Number: None

PATIENT
  Age: 51 Year
  Sex: Female
  Weight: 111.13 kg

DRUGS (28)
  1. PRISTIQ EXTENDED RELEASE [Concomitant]
     Active Substance: DESVENLAFAXINE SUCCINATE
  2. SYNTHROID [Concomitant]
     Active Substance: LEVOTHYROXINE SODIUM
  3. CRANBERRY PLUS VITAMIN C [Concomitant]
  4. OXYCODONE [Suspect]
     Active Substance: OXYCODONE
     Indication: COMPLEX REGIONAL PAIN SYNDROME
     Dosage: 1 PILL
     Route: 048
     Dates: start: 20150806, end: 20150820
  5. VITAMIN D3 [Concomitant]
     Active Substance: CHOLECALCIFEROL
  6. TOPAMAX [Concomitant]
     Active Substance: TOPIRAMATE
  7. VENTOLIN HFA INHALER [Concomitant]
  8. L-LYSINE [Concomitant]
     Active Substance: LYSINE
  9. MAGNESIUM [Concomitant]
     Active Substance: MAGNESIUM
  10. MICRONOR [Concomitant]
     Active Substance: NORETHINDRONE
  11. TRAZODONE [Concomitant]
     Active Substance: TRAZODONE HYDROCHLORIDE
  12. OXYCODONE [Concomitant]
     Active Substance: OXYCODONE
  13. XANAX [Concomitant]
     Active Substance: ALPRAZOLAM
  14. FENTANYL TRANSDERMAL SYSTEM [Concomitant]
     Active Substance: FENTANYL
  15. VITAMIN B COMPLEX [Concomitant]
     Active Substance: CYANOCOBALAMIN\DEXPANTHENOL\NIACINAMIDE\PYRIDOXINE HYDROCHLORIDE\RIBOFLAVIN 5^-PHOSPHATE SODIUM\THIAMINE HYDROCHLORIDE\VITAMIN B COMPLEX
  16. TURMERIC [Concomitant]
     Active Substance: TURMERIC
  17. ZARONTIN [Concomitant]
     Active Substance: ETHOSUXIMIDE
  18. ASMANEX [Concomitant]
     Active Substance: MOMETASONE FUROATE
  19. MULTI VITAMIN [Concomitant]
     Active Substance: VITAMINS
  20. SCS KEPPRA [Concomitant]
  21. LIDODERM [Concomitant]
     Active Substance: LIDOCAINE
  22. TGARD [Concomitant]
  23. IRON [Concomitant]
     Active Substance: IRON
  24. FISH OIL [Concomitant]
     Active Substance: FISH OIL
  25. OXYCODONE [Suspect]
     Active Substance: OXYCODONE
     Indication: PAIN MANAGEMENT
     Dosage: 1 PILL
     Route: 048
     Dates: start: 20150806, end: 20150820
  26. AMITRIPTYLINE [Concomitant]
     Active Substance: AMITRIPTYLINE
  27. LUTEIN [Concomitant]
     Active Substance: LUTEIN
  28. ZEAXANTIN [Concomitant]

REACTIONS (6)
  - Abasia [None]
  - Product quality issue [None]
  - Impaired driving ability [None]
  - Pain [None]
  - Dizziness [None]
  - Nausea [None]

NARRATIVE: CASE EVENT DATE: 20150808
